FAERS Safety Report 13432881 (Version 1)
Quarter: 2017Q2

REPORT INFORMATION
  Report Type: Spontaneous
  Country: US (occurrence: US)
  Receive Date: 20170412
  Receipt Date: 20170412
  Transmission Date: 20170830
  Serious: Yes (Hospitalization, Other)
  Sender: FDA-Public Use
  Company Number: US-GLAXOSMITHKLINE-US2017GSK051400

PATIENT
  Age: 17 Year
  Sex: Female

DRUGS (9)
  1. ALBUTEROL. [Suspect]
     Active Substance: ALBUTEROL
     Dosage: CUMULATIVE DOSE OF 3 G
     Route: 055
  2. LEVALBUTEROL. [Concomitant]
     Active Substance: LEVALBUTEROL
     Indication: ASTHMA
     Dosage: 10 MG PER HOUR FOR THE FIRST 4 HOURS AND 7.5 MG/HOUR FOR THE NEXT 4 HRS
  3. ALBUTEROL. [Suspect]
     Active Substance: ALBUTEROL
     Indication: ASTHMA
     Dosage: 2 PUFFS WITH SPACER TWO TIMES DAILY FOR 4 DAYS
     Route: 055
  4. TERBUTALINE [Suspect]
     Active Substance: TERBUTALINE
     Dosage: 0.6 MG/KG/MIN
  5. ALBUTEROL. [Suspect]
     Active Substance: ALBUTEROL
     Indication: RESPIRATORY DISTRESS
     Dosage: 4 TREATMENTS, EACH DOSE CONTAINING 4 MG
     Route: 055
  6. TERBUTALINE [Suspect]
     Active Substance: TERBUTALINE
     Indication: PRODUCT USED FOR UNKNOWN INDICATION
     Dosage: TERBUTALINE BOLUS (10MCG/KG)
  7. ALBUTEROL. [Suspect]
     Active Substance: ALBUTEROL
     Dosage: 20 MG/ H
     Route: 055
  8. TERBUTALINE [Suspect]
     Active Substance: TERBUTALINE
     Dosage: TERBUTALINE DRIP (0.4 MG/KG/MIN)
     Route: 042
  9. BENZALKONIUM CHLORIDE. [Suspect]
     Active Substance: BENZALKONIUM CHLORIDE
     Indication: PRODUCT USED FOR UNKNOWN INDICATION
     Dosage: 32 MG, UNK

REACTIONS (13)
  - Respiratory distress [Recovering/Resolving]
  - Status asthmaticus [Unknown]
  - Bronchospasm paradoxical [Recovered/Resolved]
  - Speech disorder [Unknown]
  - Wheezing [Unknown]
  - Nasal flaring [Unknown]
  - Tachycardia [Unknown]
  - Tachyphylaxis [Unknown]
  - Acute respiratory failure [Recovering/Resolving]
  - Dyspnoea [Recovering/Resolving]
  - Use of accessory respiratory muscles [Unknown]
  - Peak expiratory flow rate decreased [Recovered/Resolved]
  - Posture abnormal [Unknown]
